FAERS Safety Report 23199606 (Version 2)
Quarter: 2023Q4

REPORT INFORMATION
  Report Type: Spontaneous
  Country: US (occurrence: US)
  Receive Date: 20231117
  Receipt Date: 20231214
  Transmission Date: 20240110
  Serious: No
  Sender: FDA-Public Use
  Company Number: US-PFIZER INC-PV202300185814

PATIENT
  Age: 83 Year
  Sex: Female
  Weight: 104.3 kg

DRUGS (1)
  1. SKELAXIN [Suspect]
     Active Substance: METAXALONE
     Indication: Myalgia
     Dosage: UNK
     Route: 048
     Dates: start: 2000, end: 2018

REACTIONS (1)
  - Drug hypersensitivity [Recovered/Resolved]
